FAERS Safety Report 17944530 (Version 1)
Quarter: 2020Q2

REPORT INFORMATION
  Report Type: Report from Study
  Country: US (occurrence: US)
  Receive Date: 20200625
  Receipt Date: 20200625
  Transmission Date: 20200714
  Serious: Yes (Hospitalization)
  Sender: FDA-Public Use
  Company Number: US-EISAI MEDICAL RESEARCH-EC-2020-073094

PATIENT
  Age: 71 Year
  Sex: Male
  Weight: 61.7 kg

DRUGS (8)
  1. PERMETHRIN. [Concomitant]
     Active Substance: PERMETHRIN
  2. ISOSORBIDE. [Concomitant]
     Active Substance: ISOSORBIDE
  3. LENVIMA [Suspect]
     Active Substance: LENVATINIB
     Route: 048
     Dates: start: 2020, end: 202006
  4. HARVONI [Concomitant]
     Active Substance: LEDIPASVIR\SOFOSBUVIR
  5. MECLIZINE [Concomitant]
     Active Substance: MECLIZINE HYDROCHLORIDE
  6. NEXAVAR [Concomitant]
     Active Substance: SORAFENIB
  7. LENVIMA [Suspect]
     Active Substance: LENVATINIB
     Indication: HEPATOCELLULAR CARCINOMA
     Route: 048
     Dates: start: 20200325, end: 202004
  8. NORCO [Concomitant]
     Active Substance: ACETAMINOPHEN\HYDROCODONE BITARTRATE

REACTIONS (13)
  - Musculoskeletal chest pain [Unknown]
  - Hypoaesthesia oral [Unknown]
  - Back pain [Unknown]
  - Arthralgia [Unknown]
  - Headache [Unknown]
  - Myocardial infarction [Unknown]
  - Contusion [Unknown]
  - Ear swelling [Unknown]
  - Dysstasia [Unknown]
  - Pain in extremity [Unknown]
  - Gait inability [Unknown]
  - Musculoskeletal pain [Unknown]
  - Nasal oedema [Unknown]

NARRATIVE: CASE EVENT DATE: 2020
